FAERS Safety Report 5335371-5 (Version None)
Quarter: 2007Q2

REPORT INFORMATION
  Report Type: 
  Country: None (occurrence: None)
  Receive Date: 20070525
  Receipt Date: 20070516
  Transmission Date: 20071010
  Serious: Yes (Other)
  Sender: FDA-Public Use
  Company Number: JP-PFIZER INC-2007039693

PATIENT
  Age: 35 Year
  Sex: Female

DRUGS (2)
  1. PONTAL [Suspect]
     Indication: DYSMENORRHOEA
     Route: 048
  2. PONTAL [Suspect]
     Indication: MUSCULOSKELETAL PAIN

REACTIONS (2)
  - LOSS OF CONSCIOUSNESS [None]
  - NAUSEA [None]
